FAERS Safety Report 11879974 (Version 2)
Quarter: 2016Q1

REPORT INFORMATION
  Report Type: Spontaneous
  Country: CN (occurrence: CN)
  Receive Date: 20151230
  Receipt Date: 20160223
  Transmission Date: 20160526
  Serious: Yes (Other)
  Sender: FDA-Public Use
  Company Number: CN-TEVA-612683ISR

PATIENT

DRUGS (1)
  1. ARSENIC TRIOXIDE [Suspect]
     Active Substance: ARSENIC TRIOXIDE
     Route: 065

REACTIONS (1)
  - Osteonecrosis of jaw [Recovered/Resolved]
